FAERS Safety Report 25545759 (Version 1)
Quarter: 2025Q3

REPORT INFORMATION
  Report Type: Spontaneous
  Country: US (occurrence: US)
  Receive Date: 20250712
  Receipt Date: 20250712
  Transmission Date: 20251021
  Serious: No
  Sender: STALLERGENES
  Company Number: US-STALCOR-2025-AER-01217

PATIENT
  Age: 13 Year
  Sex: Male

DRUGS (2)
  1. PALFORZIA [Suspect]
     Active Substance: PEANUT
     Indication: Food allergy
     Dosage: REACTIVE DOSE AT LVL 3, 12MG
     Route: 048
     Dates: start: 202504
  2. PALFORZIA [Suspect]
     Active Substance: PEANUT
     Dosage: IDE
     Route: 048

REACTIONS (1)
  - Abdominal discomfort [Unknown]

NARRATIVE: CASE EVENT DATE: 20250401
